FAERS Safety Report 4549823-9 (Version None)
Quarter: 2004Q4

REPORT INFORMATION
  Report Type: 
  Country: None (occurrence: None)
  Receive Date: 20041227
  Receipt Date: 20041007
  Transmission Date: 20050328
  Serious: No
  Sender: FDA-Public Use
  Company Number: 04P-163-0276551-00

PATIENT
  Age: 48 Year
  Sex: Female
  Weight: 84.369 kg

DRUGS (4)
  1. HUMIRA [Suspect]
     Dosage: 40 MG, 1 IN 1 WK, SUBCUTANEOUS
     Route: 058
     Dates: start: 20030101, end: 20040924
  2. BOLTAREN [Concomitant]
  3. PREDNISONE [Concomitant]
  4. LEFLUNOMIDE [Concomitant]

REACTIONS (1)
  - KIDNEY INFECTION [None]
